FAERS Safety Report 15553795 (Version 1)
Quarter: 2018Q4

REPORT INFORMATION
  Report Type: Spontaneous
  Country: US (occurrence: US)
  Receive Date: 20181026
  Receipt Date: 20181026
  Transmission Date: 20190205
  Serious: No
  Sender: FDA-Public Use
  Company Number: US-SA-2018SA293867

PATIENT
  Sex: Male

DRUGS (2)
  1. ARAVA [Suspect]
     Active Substance: LEFLUNOMIDE
     Dosage: UNK UNK, UNK
     Route: 065
  2. METHOTREXATE. [Suspect]
     Active Substance: METHOTREXATE
     Indication: PSORIATIC ARTHROPATHY
     Dosage: 1 CC A WEEK
     Route: 058
     Dates: start: 2012

REACTIONS (5)
  - Vomiting [Unknown]
  - Nausea [Unknown]
  - Condition aggravated [Unknown]
  - Diarrhoea [Unknown]
  - Malaise [Unknown]
